FAERS Safety Report 4432340-4 (Version None)
Quarter: 2004Q3

REPORT INFORMATION
  Report Type: 
  Country: None (occurrence: None)
  Receive Date: 20040820
  Receipt Date: 20040816
  Transmission Date: 20050211
  Serious: Yes (Hospitalization, Other)
  Sender: FDA-Public Use
  Company Number: KII-2004-0013010

PATIENT
  Age: 16 Year
  Sex: Male

DRUGS (5)
  1. OXYCONTIN [Suspect]
     Dosage: ORAL
     Route: 048
  2. ACETAMINOPHEN W/OXYCODONE (PAARCETAMOL, OXYCODONE HYDROCHLORIDE) [Suspect]
     Dosage: ORAL
     Route: 048
  3. BENZODIAZEPINES DERIVATIVES() [Suspect]
     Dosage: ORAL
     Route: 048
  4. METHADONE HCL [Suspect]
     Dosage: ORAL
     Route: 048
  5. HALLUCINOGENIC MUSHROOMS () [Suspect]
     Dosage: ORAL
     Route: 048

REACTIONS (16)
  - CARDIAC DISORDER [None]
  - DRUG WITHDRAWAL SYNDROME [None]
  - DYSPNOEA [None]
  - GLASGOW COMA SCALE ABNORMAL [None]
  - HEART RATE INCREASED [None]
  - HYPOTENSION [None]
  - HYPOXIA [None]
  - LABILE BLOOD PRESSURE [None]
  - LIVER FUNCTION TEST ABNORMAL [None]
  - MIOSIS [None]
  - POLYSUBSTANCE ABUSE [None]
  - PULMONARY OEDEMA [None]
  - PUPILLARY REFLEX IMPAIRED [None]
  - RENAL FAILURE [None]
  - RHABDOMYOLYSIS [None]
  - SALIVARY HYPERSECRETION [None]
